FAERS Safety Report 7483826-X (Version None)
Quarter: 2011Q2

REPORT INFORMATION
  Report Type: 
  Country: None (occurrence: None)
  Receive Date: 20110509
  Receipt Date: 20110428
  Transmission Date: 20111010
  Serious: No
  Sender: FDA-Public Use
  Company Number: JP-001280

PATIENT
  Sex: Male

DRUGS (2)
  1. NAGLAZYME [Suspect]
     Indication: MUCOPOLYSACCHARIDOSIS VI
     Dosage: (10 MG 1X/WEEK, DOSE AND FREQUENCY NOT REPORTED INTRAVENOUS DRIP), (15 MG 1X/WEEK INTRAVNEOUS DRIP)
     Route: 041
     Dates: start: 20100630
  2. NAGLAZYME [Suspect]
     Indication: MUCOPOLYSACCHARIDOSIS VI
     Dosage: (10 MG 1X/WEEK, DOSE AND FREQUENCY NOT REPORTED INTRAVENOUS DRIP), (15 MG 1X/WEEK INTRAVNEOUS DRIP)
     Route: 041
     Dates: start: 20091130, end: 20100626

REACTIONS (1)
  - METAMYELOCYTE COUNT INCREASED [None]
